FAERS Safety Report 6364496-0 (Version None)
Quarter: 2009Q3

REPORT INFORMATION
  Report Type: 
  Country: None (occurrence: None)
  Receive Date: 20090919
  Receipt Date: 20090722
  Transmission Date: 20100115
  Serious: No
  Sender: FDA-Public Use
  Company Number: US-ABBOTT-09P-163-0587399-00

PATIENT
  Sex: Female
  Weight: 136.2 kg

DRUGS (7)
  1. HUMIRA [Suspect]
     Indication: PSORIATIC ARTHROPATHY
     Dates: start: 20080601, end: 20090401
  2. HUMIRA [Suspect]
     Indication: PSORIASIS
     Dates: start: 20090401
  3. OMEPRAZOLE [Concomitant]
     Indication: GASTROOESOPHAGEAL REFLUX DISEASE
  4. PREDNISONE [Concomitant]
     Indication: PSORIATIC ARTHROPATHY
  5. FOLIC ACID [Concomitant]
     Indication: PSORIATIC ARTHROPATHY
  6. CALCIUM [Concomitant]
     Indication: ROUTINE HEALTH MAINTENANCE
  7. HYDROCODONE [Concomitant]
     Indication: PAIN

REACTIONS (2)
  - DRUG DOSE OMISSION [None]
  - SWELLING [None]
